FAERS Safety Report 15368526 (Version 1)
Quarter: 2018Q3

REPORT INFORMATION
  Report Type: Report from Study
  Country: DE (occurrence: DE)
  Receive Date: 20180910
  Receipt Date: 20180910
  Transmission Date: 20181010
  Serious: Yes (Hospitalization)
  Sender: FDA-Public Use
  Company Number: DE-SA-2018SA240496

PATIENT
  Age: 77 Year
  Sex: Female
  Weight: 85 kg

DRUGS (13)
  1. OXALIPLATIN. [Suspect]
     Active Substance: OXALIPLATIN
     Indication: COLORECTAL CANCER METASTATIC
     Dosage: 85 MG, UNK
     Route: 065
     Dates: start: 20180605
  2. TORASEMID?RATIOPHARM [Concomitant]
     Active Substance: TORSEMIDE
     Dosage: 10 MG, QD
     Route: 048
  3. PANITUMUMAB [Suspect]
     Active Substance: PANITUMUMAB
     Indication: COLORECTAL CANCER METASTATIC
     Dosage: 510 MG, UNK
     Route: 042
     Dates: start: 20180605
  4. FLUOROURACIL. [Suspect]
     Active Substance: FLUOROURACIL
     Dosage: 2400 MG, UNK
     Route: 042
     Dates: start: 20180605
  5. L?THYROXIN HENNING [Concomitant]
     Active Substance: LEVOTHYROXINE SODIUM
     Dosage: 75 MUG, QD
     Route: 048
  6. PANTOPRAZOL RATIOPHARM [Concomitant]
     Active Substance: PANTOPRAZOLE SODIUM
     Dosage: 40 MG, QD
     Route: 048
  7. NOVALGIN [CAFFEINE;PARACETAMOL;PROPYPHENAZONE] [Concomitant]
     Indication: SCIATICA
     Dosage: 1500 MG, TID
     Route: 048
  8. PREDNISOLON [PREDNISOLONE ACETATE] [Concomitant]
     Indication: PSORIATIC ARTHROPATHY
     Dosage: 5 MG, QD
     Route: 048
  9. FLUOROURACIL. [Suspect]
     Active Substance: FLUOROURACIL
     Indication: COLORECTAL CANCER METASTATIC
     Dosage: 800 MG, UNK
     Route: 040
     Dates: start: 20180605
  10. MIRTAZAPIN RATIOPHARM [Concomitant]
     Dosage: 15 MG, QD
     Route: 048
  11. FOLINIC ACID [Suspect]
     Active Substance: LEUCOVORIN
     Indication: COLORECTAL CANCER METASTATIC
     Dosage: 800 MG, UNK
     Route: 065
     Dates: start: 20180605
  12. ERYPO [ERYTHROPOIETIN HUMAN] [Concomitant]
     Indication: ANAEMIA
     Dosage: 40 IU, QWK
     Route: 058
  13. BISOPROLOL?RATIOPHARM [Concomitant]
     Indication: HYPERTENSION
     Dosage: 5 MG, QD
     Route: 048

REACTIONS (1)
  - Dehydration [Recovered/Resolved]

NARRATIVE: CASE EVENT DATE: 20180710
